FAERS Safety Report 15954123 (Version 1)
Quarter: 2019Q1

REPORT INFORMATION
  Report Type: Report from Study
  Country: CA (occurrence: CA)
  Receive Date: 20190212
  Receipt Date: 20190212
  Transmission Date: 20190417
  Serious: Yes (Hospitalization)
  Sender: FDA-Public Use
  Company Number: CA-MYLANLABS-2019M1013246

PATIENT

DRUGS (2)
  1. ESTROGEL [Suspect]
     Active Substance: ESTRADIOL
     Indication: HORMONE REPLACEMENT THERAPY
     Dosage: 2.5 MILLIGRAM, QD (DAY 1-25 FOR 30 DAY CYCLE))
     Route: 062
     Dates: start: 201808
  2. PROMETRIUM [Suspect]
     Active Substance: PROGESTERONE
     Indication: HORMONE REPLACEMENT THERAPY
     Dosage: 200 MILLIGRAM, QD (DAY 1-25 FOR 30 DAY CYCLE)
     Route: 048
     Dates: start: 201808

REACTIONS (4)
  - Blood pressure decreased [Unknown]
  - Hypoaesthesia [Unknown]
  - Chest pain [Unknown]
  - Dyspnoea [Unknown]

NARRATIVE: CASE EVENT DATE: 201812
